FAERS Safety Report 9472397 (Version 1)
Quarter: 2013Q3

REPORT INFORMATION
  Report Type: Spontaneous
  Country: US (occurrence: US)
  Receive Date: 20130823
  Receipt Date: 20130823
  Transmission Date: 20140515
  Serious: Yes (Death)
  Sender: FDA-Public Use
  Company Number: US-PFIZER INC-2013241215

PATIENT
  Age: 65 Year
  Sex: Male

DRUGS (3)
  1. SUTENT [Suspect]
     Indication: RENAL CANCER
     Dosage: 12.5 MG, UNK
     Dates: start: 20130617
  2. DEXAMETHASONE [Concomitant]
     Dosage: UNK
  3. PROCHLORPERAZINE MALEATE [Concomitant]
     Dosage: UNK

REACTIONS (1)
  - Death [Fatal]
